FAERS Safety Report 6927863-X (Version None)
Quarter: 2010Q3

REPORT INFORMATION
  Report Type: 
  Country: None (occurrence: None)
  Receive Date: 20100817
  Receipt Date: 20100805
  Transmission Date: 20110219
  Serious: Yes (Other)
  Sender: FDA-Public Use
  Company Number: JP-PFIZER INC-2010098220

PATIENT
  Age: 11 Year
  Sex: Male

DRUGS (2)
  1. ALDACTONE [Suspect]
     Dosage: UNK
  2. ALDACTONE [Suspect]
     Dosage: UNK

REACTIONS (1)
  - DRUG RASH WITH EOSINOPHILIA AND SYSTEMIC SYMPTOMS [None]
